FAERS Safety Report 6666316-3 (Version None)
Quarter: 2010Q2

REPORT INFORMATION
  Report Type: 
  Country: None (occurrence: None)
  Receive Date: 20100402
  Receipt Date: 20100324
  Transmission Date: 20101027
  Serious: Yes (Hospitalization, Other)
  Sender: FDA-Public Use
  Company Number: GB-ELI_LILLY_AND_COMPANY-GB201003002793

PATIENT
  Age: 90 Year
  Sex: Male

DRUGS (3)
  1. OLANZAPINE [Suspect]
     Dosage: 10 MG, UNK
     Dates: start: 20100107, end: 20100302
  2. DONEPEZIL HCL [Concomitant]
     Indication: DEMENTIA
  3. ASPIRIN [Concomitant]

REACTIONS (15)
  - ABNORMAL BEHAVIOUR [None]
  - BLADDER OBSTRUCTION [None]
  - CONFUSIONAL STATE [None]
  - CONSTIPATION [None]
  - DELIRIUM [None]
  - DISABILITY [None]
  - ELECTROCARDIOGRAM QT PROLONGED [None]
  - FALL [None]
  - FATIGUE [None]
  - HALLUCINATION [None]
  - INSOMNIA [None]
  - MEDICATION ERROR [None]
  - RECTAL PROLAPSE [None]
  - SOMNOLENCE [None]
  - URINARY TRACT INFECTION [None]
